FAERS Safety Report 21380701 (Version 1)
Quarter: 2022Q3

REPORT INFORMATION
  Report Type: Spontaneous
  Country: GB (occurrence: GB)
  Receive Date: 20220927
  Receipt Date: 20220927
  Transmission Date: 20221027
  Serious: Yes (Other)
  Sender: FDA-Public Use
  Company Number: None

PATIENT
  Age: 43 Year
  Sex: Female
  Weight: 43 kg

DRUGS (9)
  1. KETAMINE HYDROCHLORIDE [Suspect]
     Active Substance: KETAMINE HYDROCHLORIDE
     Indication: Pain management
     Dosage: UNK
     Route: 042
     Dates: start: 20220617, end: 20220619
  2. DULOXETINE [Concomitant]
     Active Substance: DULOXETINE
     Indication: Pain management
     Dosage: 30 MG, 1X/DAY AT NIGHT
  3. LAMOTRIGINE [Concomitant]
     Active Substance: LAMOTRIGINE
     Indication: Pain management
     Dosage: 50 MG, 2X/DAY
     Route: 048
     Dates: start: 20220617
  4. CLONIDINE [Concomitant]
     Active Substance: CLONIDINE
     Indication: Pain management
     Dosage: 150 UG, AS NEEDED
     Route: 048
     Dates: start: 20220617
  5. ACETAMINOPHEN [Concomitant]
     Active Substance: ACETAMINOPHEN
     Indication: Pain management
     Dosage: UNK, AS NEEDED
  6. TRAMADOL [Concomitant]
     Active Substance: TRAMADOL
     Indication: Pain management
     Dosage: 100 MG, 1X/DAY
     Route: 048
     Dates: start: 20220617
  7. CYCLIZINE [Concomitant]
     Active Substance: CYCLIZINE
     Dosage: 50 MG, AS NEEDED
  8. GABAPENTIN [Concomitant]
     Active Substance: GABAPENTIN
     Indication: Pain management
     Dosage: 300 MG, 2X/DAY
  9. MORPHINE [Concomitant]
     Active Substance: MORPHINE
     Indication: Pain management
     Dosage: 10 MG, AS NEEDED
     Route: 048
     Dates: start: 20220617

REACTIONS (1)
  - Infusion site phlebitis [Recovered/Resolved]

NARRATIVE: CASE EVENT DATE: 20220618
